FAERS Safety Report 24655726 (Version 2)
Quarter: 2024Q4

REPORT INFORMATION
  Report Type: Spontaneous
  Country: JP (occurrence: JP)
  Receive Date: 20241123
  Receipt Date: 20241129
  Transmission Date: 20250115
  Serious: Yes (Disabling, Other)
  Sender: ALEXION PHARMACEUTICALS
  Company Number: JP-ASTRAZENECA-240113908_064320_P_1

PATIENT

DRUGS (1)
  1. ANDEXXA [Suspect]
     Active Substance: ANDEXANET ALFA
     Indication: Brain stem haemorrhage
     Dosage: DOSE UNKNOWN

REACTIONS (3)
  - Monoplegia [Recovered/Resolved with Sequelae]
  - Altered state of consciousness [Unknown]
  - Dysphagia [Unknown]
